FAERS Safety Report 17762205 (Version 2)
Quarter: 2020Q2

REPORT INFORMATION
  Report Type: Spontaneous
  Country: US (occurrence: US)
  Receive Date: 20200508
  Receipt Date: 20200617
  Transmission Date: 20200714
  Serious: No
  Sender: FDA-Public Use
  Company Number: US-ASTRAZENECA-2020SE52026

PATIENT
  Sex: Female
  Weight: 76.2 kg

DRUGS (1)
  1. SYMBICORT [Suspect]
     Active Substance: BUDESONIDE\FORMOTEROL FUMARATE DIHYDRATE
     Indication: PNEUMONITIS
     Dosage: 160/4.5 MCG 120 INHALATIONS, 2 PUFFS TWICE DAILY
     Route: 055
     Dates: start: 20200409

REACTIONS (5)
  - Incorrect dose administered by device [Unknown]
  - Nervousness [Unknown]
  - Product dose omission [Unknown]
  - Drug ineffective [Unknown]
  - Device malfunction [Unknown]
